FAERS Safety Report 5365260-1 (Version None)
Quarter: 2007Q2

REPORT INFORMATION
  Report Type: 
  Country: None (occurrence: None)
  Receive Date: 20070530
  Receipt Date: 20070205
  Transmission Date: 20071010
  Serious: No
  Sender: FDA-Public Use
  Company Number: 2006PV021593

PATIENT
  Age: 59 Year
  Sex: Female
  Weight: 99.7913 kg

DRUGS (14)
  1. BYETTA [Suspect]
     Indication: DIABETES MELLITUS NON-INSULIN-DEPENDENT
     Dosage: 10 MCG BID SC ; 5 MCG BID SC
     Route: 058
     Dates: start: 20051101, end: 20051201
  2. BYETTA [Suspect]
     Indication: DIABETES MELLITUS NON-INSULIN-DEPENDENT
     Dosage: 10 MCG BID SC ; 5 MCG BID SC
     Route: 058
     Dates: start: 20051201
  3. ZOCOR [Suspect]
     Indication: BLOOD CHOLESTEROL INCREASED
     Dosage: 20 MG HS PO
     Route: 048
     Dates: start: 20060101
  4. PERDIEM [Concomitant]
  5. AVANDIA [Concomitant]
  6. GLUCOTROL [Concomitant]
  7. TENORMIN [Concomitant]
  8. ZESTRIL [Concomitant]
  9. ALDACTONE [Concomitant]
  10. SYNTHROID [Concomitant]
  11. ESTRADERM [Concomitant]
  12. ALPHAGAN [Concomitant]
  13. CENTRUM SILVER [Concomitant]
  14. LUMIGAN [Concomitant]

REACTIONS (3)
  - CONSTIPATION [None]
  - DECREASED APPETITE [None]
  - WEIGHT DECREASED [None]
